FAERS Safety Report 23986250 (Version 8)
Quarter: 2025Q1

REPORT INFORMATION
  Report Type: Report from Study
  Country: US (occurrence: US)
  Receive Date: 20240618
  Receipt Date: 20250218
  Transmission Date: 20250409
  Serious: Yes (Hospitalization, Other)
  Sender: TAKEDA
  Company Number: US-TAKEDA-2024TUS056742

PATIENT
  Sex: Male

DRUGS (8)
  1. VEDOLIZUMAB [Suspect]
     Active Substance: VEDOLIZUMAB
     Indication: Colitis ulcerative
     Dosage: 108 MILLIGRAM, Q2WEEKS
     Dates: start: 20240503
  2. VEDOLIZUMAB [Suspect]
     Active Substance: VEDOLIZUMAB
     Dosage: 108 MILLIGRAM, Q2WEEKS
  3. TRAZODONE HCL [Concomitant]
     Active Substance: TRAZODONE HYDROCHLORIDE
  4. GABAPENTIN [Concomitant]
     Active Substance: GABAPENTIN
  5. CHLORTHALIDONE [Concomitant]
     Active Substance: CHLORTHALIDONE
  6. LISINOPRIL [Concomitant]
     Active Substance: LISINOPRIL
  7. MINERALS\VITAMINS [Concomitant]
     Active Substance: MINERALS\VITAMINS
  8. SULFASALAZINE [Concomitant]
     Active Substance: SULFASALAZINE

REACTIONS (17)
  - Colitis ulcerative [Unknown]
  - Sternal fracture [Unknown]
  - Rib fracture [Unknown]
  - Road traffic accident [Unknown]
  - Product dose omission issue [Unknown]
  - Inappropriate schedule of product administration [Recovered/Resolved]
  - Illness [Unknown]
  - Product distribution issue [Unknown]
  - Anal incontinence [Unknown]
  - Treatment failure [Unknown]
  - Pollakiuria [Unknown]
  - Flatulence [Recovered/Resolved]
  - Muscular weakness [Unknown]
  - Rash [Unknown]
  - Back pain [Unknown]
  - Arthralgia [Unknown]
  - Pruritus [Unknown]
